FAERS Safety Report 25433238 (Version 1)
Quarter: 2025Q2

REPORT INFORMATION
  Report Type: Spontaneous
  Country: FR (occurrence: FR)
  Receive Date: 20250613
  Receipt Date: 20250613
  Transmission Date: 20250716
  Serious: Yes (Hospitalization)
  Sender: CHEPLAPHARM
  Company Number: None

PATIENT
  Age: 14 Year
  Sex: Male
  Weight: 57 kg

DRUGS (9)
  1. CLONAZEPAM [Suspect]
     Active Substance: CLONAZEPAM
     Indication: Generalised tonic-clonic seizure
     Route: 048
  2. LAMICTAL [Suspect]
     Active Substance: LAMOTRIGINE
     Indication: Generalised tonic-clonic seizure
     Dosage: DISPERSIBLE OR CHEWABLE TABLET; 200 MG MORNING AND EVENING (8 MG/KG/DAY) ?DAILY DOSE: 400 MILLIGRAM
     Route: 048
  3. TRILEPTAL [Suspect]
     Active Substance: OXCARBAZEPINE
     Indication: Generalised tonic-clonic seizure
     Dosage: 750 MG MORNING AND EVENING (27 MG/KG/DAY)?DAILY DOSE: 1500 MILLIGRAM
     Route: 048
     Dates: start: 202410
  4. TRILEPTAL [Suspect]
     Active Substance: OXCARBAZEPINE
     Indication: Generalised tonic-clonic seizure
  5. RISPERDAL [Suspect]
     Active Substance: RISPERIDONE
     Indication: Generalised tonic-clonic seizure
     Dosage: DAILY DOSE: 1.5 MILLIGRAM
     Route: 048
  6. STRATTERA [Suspect]
     Active Substance: ATOMOXETINE HYDROCHLORIDE
     Indication: Autism spectrum disorder
     Dosage: DAILY DOSE: 25 MILLIGRAM
     Route: 048
  7. TRIMEPRAZINE [Suspect]
     Active Substance: TRIMEPRAZINE
     Indication: Sleep disorder
     Dosage: 10 MG/DAY?DAILY DOSE: 10 MILLIGRAM
     Route: 048
  8. MIDAZOLAM HYDROCHLORIDE [Suspect]
     Active Substance: MIDAZOLAM HYDROCHLORIDE
  9. DILANTIN [Suspect]
     Active Substance: PHENYTOIN

REACTIONS (1)
  - Inappropriate antidiuretic hormone secretion [Recovered/Resolved]

NARRATIVE: CASE EVENT DATE: 20250327
